FAERS Safety Report 5399673-9 (Version None)
Quarter: 2007Q3

REPORT INFORMATION
  Report Type: 
  Country: None (occurrence: None)
  Receive Date: 20070727
  Receipt Date: 20070717
  Transmission Date: 20080115
  Serious: Yes (Hospitalization)
  Sender: FDA-Public Use
  Company Number: IN-PFIZER INC-2007059204

PATIENT
  Sex: Male

DRUGS (2)
  1. DEPO-MEDROL [Suspect]
     Indication: ARTHRALGIA
     Dosage: TEXT:80 MG/2ML
     Route: 030
     Dates: start: 20070717, end: 20070717
  2. DEPO-MEDROL [Suspect]
     Indication: JOINT SWELLING

REACTIONS (4)
  - BLOOD PRESSURE DECREASED [None]
  - HEAD DISCOMFORT [None]
  - ORAL PRURITUS [None]
  - TREMOR [None]
